FAERS Safety Report 13486119 (Version 3)
Quarter: 2017Q2

REPORT INFORMATION
  Report Type: Report from Study
  Country: US (occurrence: US)
  Receive Date: 20170426
  Receipt Date: 20170511
  Transmission Date: 20170830
  Serious: Yes (Hospitalization)
  Sender: FDA-Public Use
  Company Number: US-VIFOR (INTERNATIONAL) INC.-VIT-2017-04353

PATIENT
  Age: 81 Year
  Sex: Male

DRUGS (2)
  1. VELTASSA [Suspect]
     Active Substance: PATIROMER
     Indication: HYPERKALAEMIA
     Route: 048
     Dates: start: 20170207, end: 20170328
  2. VELTASSA [Suspect]
     Active Substance: PATIROMER
     Route: 048
     Dates: start: 20170307

REACTIONS (8)
  - Impaired gastric emptying [Recovered/Resolved]
  - Gastrointestinal motility disorder [Unknown]
  - Abdominal discomfort [Unknown]
  - Upper limb fracture [Unknown]
  - Fall [Unknown]
  - Faecaloma [Unknown]
  - Flatulence [Unknown]
  - Limb operation [Unknown]

NARRATIVE: CASE EVENT DATE: 2017
